FAERS Safety Report 23737684 (Version 1)
Quarter: 2024Q2

REPORT INFORMATION
  Report Type: Spontaneous
  Country: PL (occurrence: PL)
  Receive Date: 20240412
  Receipt Date: 20240412
  Transmission Date: 20240716
  Serious: Yes (Hospitalization, Other)
  Sender: FDA-Public Use
  Company Number: PL-SA-2016SA133007

PATIENT
  Age: 22 Year
  Sex: Female

DRUGS (21)
  1. DACLATASVIR [Suspect]
     Active Substance: DACLATASVIR
     Indication: Hepatitis cholestatic
     Dosage: 60 MG,QD
     Route: 065
     Dates: start: 20130225, end: 20130527
  2. MYCOPHENOLATE MOFETIL [Suspect]
     Active Substance: MYCOPHENOLATE MOFETIL
     Indication: Immunosuppression
     Dosage: UNK
     Route: 065
     Dates: start: 201207
  3. PEGINTERFERON ALFA-2A [Suspect]
     Active Substance: PEGINTERFERON ALFA-2A
     Indication: Hepatitis C
     Dosage: UNK
     Route: 065
     Dates: start: 20130225, end: 20130527
  4. PEGINTERFERON ALFA-2A [Suspect]
     Active Substance: PEGINTERFERON ALFA-2A
     Dosage: UNK
     Route: 065
     Dates: start: 20120903, end: 20121001
  5. PEGINTERFERON ALFA-2A [Suspect]
     Active Substance: PEGINTERFERON ALFA-2A
     Dosage: UNK
     Route: 065
     Dates: start: 20121014, end: 20121201
  6. PEGINTERFERON ALFA-2A [Suspect]
     Active Substance: PEGINTERFERON ALFA-2A
     Dosage: UNK
     Route: 065
     Dates: start: 20130909, end: 20140310
  7. PREDNISONE [Suspect]
     Active Substance: PREDNISONE
     Indication: Immunosuppression
     Dosage: UNK
     Route: 065
     Dates: start: 201207
  8. RIBAVIRIN [Suspect]
     Active Substance: RIBAVIRIN
     Indication: Hepatitis C
     Dosage: 2 DF
     Route: 065
     Dates: start: 20120903, end: 20121001
  9. RIBAVIRIN [Suspect]
     Active Substance: RIBAVIRIN
     Dosage: 2 DF
     Route: 065
     Dates: start: 20130909, end: 20140310
  10. RIBAVIRIN [Suspect]
     Active Substance: RIBAVIRIN
     Indication: Hepatitis cholestatic
     Dosage: UNK
     Route: 065
     Dates: start: 20130225, end: 20130527
  11. RIBAVIRIN [Suspect]
     Active Substance: RIBAVIRIN
     Dosage: UNK
     Route: 065
     Dates: start: 20121014, end: 20121201
  12. SOFOSBUVIR [Suspect]
     Active Substance: SOFOSBUVIR
     Indication: Hepatitis cholestatic
     Dosage: 400 MG,QD
     Route: 065
     Dates: start: 20130909
  13. TACROLIMUS [Suspect]
     Active Substance: TACROLIMUS
     Dosage: .5 MG,QD
     Route: 065
     Dates: start: 201302
  14. TACROLIMUS [Suspect]
     Active Substance: TACROLIMUS
     Dosage: 0.5 MG
     Route: 065
  15. TACROLIMUS [Suspect]
     Active Substance: TACROLIMUS
     Dosage: 1.5 MG,QD
     Route: 065
     Dates: start: 2013
  16. TACROLIMUS [Suspect]
     Active Substance: TACROLIMUS
     Dosage: UNK
     Route: 065
  17. TACROLIMUS [Suspect]
     Active Substance: TACROLIMUS
     Indication: Immunosuppression
     Dosage: UNK UNK,UNK
     Route: 065
     Dates: start: 201207
  18. TELAPREVIR [Suspect]
     Active Substance: TELAPREVIR
     Indication: Hepatitis cholestatic
     Dosage: 3 DF
     Route: 065
     Dates: start: 20121014, end: 20121201
  19. TELAPREVIR [Suspect]
     Active Substance: TELAPREVIR
     Indication: Antiviral treatment
  20. CLOTRIMAZOLE [Concomitant]
     Active Substance: CLOTRIMAZOLE
     Indication: Product used for unknown indication
     Dosage: UNK
     Route: 065
     Dates: start: 2012
  21. LINUM USITATISSIMUM SEED [Concomitant]
     Indication: Product used for unknown indication
     Dosage: LINOMAG: OIL CREAM
     Route: 065

REACTIONS (23)
  - Ascites [Unknown]
  - Hepatic encephalopathy [Unknown]
  - Hypogammaglobulinaemia [Recovered/Resolved]
  - Pancytopenia [Not Recovered/Not Resolved]
  - Fibrosis [Unknown]
  - Gastric ulcer [Recovered/Resolved]
  - Hepatic cirrhosis [Unknown]
  - Thrombocytopenia [Unknown]
  - Hepatitis C [Unknown]
  - Anaemia [Unknown]
  - Neutropenia [Unknown]
  - Clostridium difficile infection [Recovered/Resolved]
  - Hepatic failure [Unknown]
  - Leukopenia [Unknown]
  - Hepatitis cholestatic [Recovered/Resolved]
  - Upper respiratory tract infection [Unknown]
  - Graft loss [Unknown]
  - Urinary tract infection [Unknown]
  - Oral candidiasis [Unknown]
  - Hypoalbuminaemia [Unknown]
  - Genital candidiasis [Unknown]
  - Anal pruritus [Unknown]
  - Drug ineffective [Unknown]

NARRATIVE: CASE EVENT DATE: 20120101
